FAERS Safety Report 10765876 (Version 1)
Quarter: 2015Q1

REPORT INFORMATION
  Report Type: Report from Study
  Country: US (occurrence: US)
  Receive Date: 20150205
  Receipt Date: 20150205
  Transmission Date: 20150721
  Serious: Yes (Other)
  Sender: FDA-Public Use
  Company Number: US-BAYER-2014-189654

PATIENT
  Age: 74 Year
  Sex: Female

DRUGS (2)
  1. STIVARGA [Suspect]
     Active Substance: REGORAFENIB
     Indication: METASTASES TO LUNG
  2. STIVARGA [Suspect]
     Active Substance: REGORAFENIB
     Indication: COLORECTAL CANCER METASTATIC
     Dosage: 160 MG, QD
     Route: 048
     Dates: start: 20141209

REACTIONS (18)
  - Headache [None]
  - Foreign body [None]
  - Stomatitis [None]
  - Asthenia [None]
  - Dizziness [None]
  - Blood pressure increased [None]
  - Dry mouth [None]
  - Blood pressure increased [Not Recovered/Not Resolved]
  - Fatigue [None]
  - Glossodynia [None]
  - Dehydration [None]
  - Diarrhoea [None]
  - Blood pressure increased [None]
  - Increased tendency to bruise [None]
  - International normalised ratio fluctuation [None]
  - Nausea [None]
  - Headache [None]
  - Dysphonia [None]

NARRATIVE: CASE EVENT DATE: 20141219
